FAERS Safety Report 16447060 (Version 6)
Quarter: 2020Q1

REPORT INFORMATION
  Report Type: Report from Study
  Country: US (occurrence: US)
  Receive Date: 20190618
  Receipt Date: 20200123
  Transmission Date: 20200409
  Serious: Yes (Hospitalization, Other)
  Sender: FDA-Public Use
  Company Number: US-SHIRE-US201918578

PATIENT
  Age: 68 Year
  Sex: Female

DRUGS (3)
  1. GATTEX [Suspect]
     Active Substance: TEDUGLUTIDE\WATER
     Indication: SHORT-BOWEL SYNDROME
     Dosage: 3.67 MILLIGRAM 1X/DAY:QD
     Route: 058
     Dates: start: 20160115
  2. GATTEX [Suspect]
     Active Substance: TEDUGLUTIDE\WATER
     Dosage: 0.2630 (UNKNOWN UNIT) 1X/DAY:QD
     Route: 058
     Dates: start: 20160115
  3. GATTEX [Suspect]
     Active Substance: TEDUGLUTIDE\WATER
     Dosage: 1.6, 1X/DAY:QD
     Route: 058
     Dates: start: 201906

REACTIONS (14)
  - Faecaloma [Unknown]
  - Flatulence [Recovered/Resolved]
  - Obstruction [Recovered/Resolved]
  - Anxiety [Not Recovered/Not Resolved]
  - Ligament sprain [Not Recovered/Not Resolved]
  - Tremor [Recovered/Resolved]
  - Weight decreased [Recovering/Resolving]
  - Frequent bowel movements [Not Recovered/Not Resolved]
  - Nausea [Not Recovered/Not Resolved]
  - Abdominal pain upper [Not Recovered/Not Resolved]
  - Fall [Not Recovered/Not Resolved]
  - Joint injury [Unknown]
  - Limb injury [Unknown]
  - Vomiting [Recovered/Resolved]

NARRATIVE: CASE EVENT DATE: 20160115
